FAERS Safety Report 9355649 (Version 2)
Quarter: 2013Q2

REPORT INFORMATION
  Report Type: Spontaneous
  Country: BE (occurrence: BE)
  Receive Date: 20130619
  Receipt Date: 20130625
  Transmission Date: 20140414
  Serious: Yes (Hospitalization)
  Sender: FDA-Public Use
  Company Number: BE-BRISTOL-MYERS SQUIBB COMPANY-18908723

PATIENT
  Age: 84 Year
  Sex: Male

DRUGS (7)
  1. SPRYCEL (CML) TABS 100 MG [Suspect]
     Indication: CHRONIC MYELOID LEUKAEMIA
     Dosage: DOSE REDUCED TO 70 MG
     Route: 048
     Dates: end: 20130423
  2. SPIRIVA [Concomitant]
  3. AMLOR [Concomitant]
  4. CARDIOASPIRIN [Concomitant]
  5. MEDROL [Concomitant]
  6. OMEPRAZOLE [Concomitant]
  7. SERETIDE [Concomitant]

REACTIONS (2)
  - Colitis [Recovered/Resolved]
  - Appendicitis [Recovered/Resolved]
